FAERS Safety Report 4524000-6 (Version None)
Quarter: 2004Q4

REPORT INFORMATION
  Report Type: 
  Country: None (occurrence: None)
  Receive Date: 20041210
  Receipt Date: 20040915
  Transmission Date: 20050328
  Serious: Yes (Hospitalization)
  Sender: FDA-Public Use
  Company Number: FR-ABBOTT-04P-056-0273543-00

PATIENT
  Sex: Female

DRUGS (9)
  1. RITONAVIR SOFT GELATIN CAPSULES [Suspect]
     Indication: HIV INFECTION
     Route: 048
     Dates: start: 20040301, end: 20040406
  2. RITONAVIR SOFT GELATIN CAPSULES [Suspect]
     Route: 048
     Dates: start: 20040503
  3. TIPRANAVIR [Concomitant]
     Indication: HIV INFECTION
     Dates: start: 20040301, end: 20040406
  4. TIPRANAVIR [Concomitant]
     Dates: start: 20040503
  5. CLARITHROMYCIN [Concomitant]
     Indication: DRUG USE FOR UNKNOWN INDICATION
  6. ENFUVIRTIDE [Concomitant]
     Indication: DRUG USE FOR UNKNOWN INDICATION
  7. RIFABUTIN [Concomitant]
     Indication: DRUG USE FOR UNKNOWN INDICATION
  8. ETHAMBUTOL [Concomitant]
     Indication: DRUG USE FOR UNKNOWN INDICATION
  9. CARVEDILOL [Concomitant]
     Indication: DRUG USE FOR UNKNOWN INDICATION

REACTIONS (1)
  - CEREBRAL HAEMORRHAGE [None]
